FAERS Safety Report 7216917-9 (Version None)
Quarter: 2010Q4

REPORT INFORMATION
  Report Type: 
  Country: None (occurrence: None)
  Receive Date: 20101229
  Receipt Date: 20101220
  Transmission Date: 20110411
  Serious: Yes (Hospitalization)
  Sender: FDA-Public Use
  Company Number: 2010SP065517

PATIENT
  Age: 53 Day
  Sex: Female

DRUGS (5)
  1. CELESTONE [Suspect]
     Indication: FOETAL GROWTH RESTRICTION
     Dosage: IV
     Route: 042
     Dates: start: 20100819, end: 20100907
  2. ALDACTONE [Suspect]
     Indication: FOETAL GROWTH RESTRICTION
     Dosage: 2 MG;QD;PO
     Route: 048
     Dates: start: 20100801
  3. TRIFLUCAN (FLUCONAZOLE) [Suspect]
     Indication: OPPORTUNISTIC INFECTION PROPHYLAXIS
     Dosage: IV
     Route: 042
     Dates: start: 20100819
  4. FERROSTRANE [Concomitant]
  5. SPECIAFOLDINE [Concomitant]

REACTIONS (4)
  - ANAEMIA NEONATAL [None]
  - FEMUR FRACTURE [None]
  - PATHOLOGICAL FRACTURE [None]
  - RESPIRATORY TRACT INFECTION [None]
